FAERS Safety Report 16439376 (Version 23)
Quarter: 2025Q1

REPORT INFORMATION
  Report Type: Report from Study
  Country: US (occurrence: US)
  Receive Date: 20190617
  Receipt Date: 20250314
  Transmission Date: 20250409
  Serious: Yes (Life-Threatening, Other)
  Sender: TAKEDA
  Company Number: US-SHIRE-US201919349

PATIENT
  Age: 65 Year
  Sex: Female

DRUGS (7)
  1. LANADELUMAB [Suspect]
     Active Substance: LANADELUMAB
     Indication: Hereditary angioedema
     Dosage: 300 MILLIGRAM, Q2WEEKS
     Dates: start: 20180118
  2. LANADELUMAB [Suspect]
     Active Substance: LANADELUMAB
     Indication: Prophylaxis
     Dosage: 300 MILLIGRAM, Q2WEEKS
  3. LANADELUMAB [Suspect]
     Active Substance: LANADELUMAB
     Dosage: 300 MILLIGRAM, Q2WEEKS
     Dates: start: 20181114
  4. LANADELUMAB [Suspect]
     Active Substance: LANADELUMAB
     Dosage: 300 MILLIGRAM, Q4WEEKS
  5. LANADELUMAB [Suspect]
     Active Substance: LANADELUMAB
     Dosage: UNK UNK, Q2WEEKS
  6. FIRAZYR [Suspect]
     Active Substance: ICATIBANT ACETATE
     Indication: Hereditary angioedema
  7. FIRAZYR [Suspect]
     Active Substance: ICATIBANT ACETATE

REACTIONS (23)
  - COVID-19 [Recovered/Resolved]
  - Weight decreased [Unknown]
  - Hereditary angioedema [Recovering/Resolving]
  - Arthropod bite [Recovering/Resolving]
  - Incision site impaired healing [Recovering/Resolving]
  - Cerebrovascular accident [Unknown]
  - Rib fracture [Unknown]
  - Swelling [Unknown]
  - Hypoaesthesia [Unknown]
  - Dermatitis contact [Unknown]
  - Plantar fasciitis [Unknown]
  - Kidney infection [Recovering/Resolving]
  - Bedridden [Unknown]
  - Sacroiliitis [Unknown]
  - Floppy eyelid syndrome [Unknown]
  - Vasculitis [Unknown]
  - Multiple allergies [Unknown]
  - Exostosis [Unknown]
  - Stress [Recovered/Resolved]
  - Somnolence [Recovered/Resolved]
  - Product distribution issue [Recovered/Resolved]
  - Inappropriate schedule of product administration [Recovering/Resolving]
  - Urinary tract infection [Recovering/Resolving]

NARRATIVE: CASE EVENT DATE: 20230121
